FAERS Safety Report 4855410-5 (Version None)
Quarter: 2005Q4

REPORT INFORMATION
  Report Type: 
  Country: None (occurrence: None)
  Receive Date: 20051125
  Receipt Date: 20050607
  Transmission Date: 20060501
  Serious: Yes (Disabling, Other)
  Sender: FDA-Public Use
  Company Number: US-JNJFOC-20050301240

PATIENT
  Age: 69 Year
  Sex: Female
  Weight: 52.1637 kg

DRUGS (3)
  1. LEVAQUIN [Suspect]
     Indication: BRONCHITIS
     Dosage: 500 MG
     Dates: start: 20050125, end: 20050211
  2. POTASSIUM [Concomitant]
  3. ALDACTAZIDE [Concomitant]

REACTIONS (1)
  - TENDON RUPTURE [None]
